FAERS Safety Report 4499997-3 (Version None)
Quarter: 2004Q4

REPORT INFORMATION
  Report Type: 
  Country: None (occurrence: None)
  Receive Date: 20041110
  Receipt Date: 20041104
  Transmission Date: 20050328
  Serious: Yes (Hospitalization)
  Sender: FDA-Public Use
  Company Number: 04-11-1552

PATIENT
  Age: 17 Year
  Sex: Female

DRUGS (3)
  1. CLOZAPINE [Suspect]
     Indication: BIPOLAR DISORDER
     Dosage: ORAL
     Route: 048
  2. VALPROATE SODIUM [Concomitant]
  3. CLOPENTHIXOL [Concomitant]

REACTIONS (19)
  - APPENDICITIS [None]
  - C-REACTIVE PROTEIN INCREASED [None]
  - CHEST PAIN [None]
  - COXSACKIE VIRUS SEROLOGY TEST POSITIVE [None]
  - DIARRHOEA [None]
  - ELECTROCARDIOGRAM T WAVE AMPLITUDE DECREASED [None]
  - ELECTROCARDIOGRAM T WAVE INVERSION [None]
  - ENTEROCOLITIS [None]
  - ENTEROVIRUS SEROLOGY TEST POSITIVE [None]
  - EOSINOPHILIA [None]
  - GAMMA-GLUTAMYLTRANSFERASE INCREASED [None]
  - LEUKOCYTOSIS [None]
  - NORMOCHROMIC NORMOCYTIC ANAEMIA [None]
  - OPPOSITIONAL DEFIANT DISORDER [None]
  - PERICARDIAL EFFUSION [None]
  - PYREXIA [None]
  - SHIFT TO THE LEFT [None]
  - THROMBOCYTHAEMIA [None]
  - TROPONIN T INCREASED [None]
